FAERS Safety Report 21356258 (Version 1)
Quarter: 2022Q3

REPORT INFORMATION
  Report Type: Spontaneous
  Country: FR (occurrence: FR)
  Receive Date: 20220920
  Receipt Date: 20220920
  Transmission Date: 20221027
  Serious: Yes (Hospitalization)
  Sender: FDA-Public Use
  Company Number: FR-ANIPHARMA-2022-FR-000181

PATIENT
  Age: 90 Year
  Sex: Male

DRUGS (6)
  1. CANDESARTAN CILEXETIL [Suspect]
     Active Substance: CANDESARTAN CILEXETIL
     Indication: Essential hypertension
     Dosage: 4 MG DAILY
     Route: 048
     Dates: end: 20220414
  2. BISOPROLOL [Suspect]
     Active Substance: BISOPROLOL
     Dosage: 1.25 MG DAILY
     Route: 048
  3. ASPIRIN [Suspect]
     Active Substance: ASPIRIN
     Dosage: 1.25 MG DAILY
     Route: 048
  4. AMIODARONE [Suspect]
     Active Substance: AMIODARONE
     Dosage: 1 TABLET 04 DAYS IN A WEEK
     Route: 048
  5. KARDEGIC [Suspect]
     Active Substance: ASPIRIN DL-LYSINE
     Dosage: 75 MG DAILY
     Route: 048
  6. SPIRONOLACTONE [Suspect]
     Active Substance: SPIRONOLACTONE
     Dosage: 25 MG DAILY
     Route: 048

REACTIONS (3)
  - Urinary tract infection [Unknown]
  - Hypotension [Unknown]
  - Hyperkalaemia [Recovered/Resolved]

NARRATIVE: CASE EVENT DATE: 20220414
